FAERS Safety Report 21808313 (Version 1)
Quarter: 2023Q1

REPORT INFORMATION
  Report Type: Other
  Country: US (occurrence: None)
  Receive Date: 20230103
  Receipt Date: 20230103
  Transmission Date: 20230417
  Serious: Yes (Hospitalization)
  Sender: FDA-Public Use
  Company Number: US-ROCHE-3254727

PATIENT
  Age: 50 Year
  Sex: Female

DRUGS (1)
  1. XELODA [Suspect]
     Active Substance: CAPECITABINE
     Indication: Colon cancer
     Dosage: TAKE 2 TABLET(S) BY MOUTH TWICE A DAY 2 WEEK(S) ON, 1 WEEK(S) OFF
     Route: 047

REACTIONS (3)
  - Haemorrhage [Unknown]
  - White blood cell count decreased [Unknown]
  - Headache [Unknown]
